FAERS Safety Report 15355826 (Version 1)
Quarter: 2018Q3

REPORT INFORMATION
  Report Type: Spontaneous
  Country: CZ (occurrence: CZ)
  Receive Date: 20180906
  Receipt Date: 20180906
  Transmission Date: 20181010
  Serious: Yes (Hospitalization)
  Sender: FDA-Public Use
  Company Number: CZ-BAUSCH-BL-2018-024308

PATIENT
  Age: 65 Year
  Sex: Female

DRUGS (5)
  1. GLIMEPIRIDE. [Suspect]
     Active Substance: GLIMEPIRIDE
     Indication: DIABETES MELLITUS
     Route: 065
  2. NPH INSULIN [Concomitant]
     Active Substance: INSULIN BEEF
     Indication: HYPERGLYCAEMIA
     Route: 065
     Dates: start: 2002, end: 2007
  3. METFORMIN [Suspect]
     Active Substance: METFORMIN HYDROCHLORIDE
     Indication: DIABETES MELLITUS
     Dosage: DOSE UNKNOWN (MG)
     Route: 065
  4. INSULIN ASPART [Concomitant]
     Active Substance: INSULIN ASPART
     Indication: TYPE 2 DIABETES MELLITUS
     Route: 065
  5. INSULIN DETEMIR [Concomitant]
     Active Substance: INSULIN DETEMIR
     Indication: TYPE 2 DIABETES MELLITUS
     Route: 065

REACTIONS (4)
  - Abscess limb [Unknown]
  - Subcutaneous abscess [Unknown]
  - Fistula [Unknown]
  - Hyperglycaemia [Recovered/Resolved]

NARRATIVE: CASE EVENT DATE: 2002
